FAERS Safety Report 4311287-8 (Version None)
Quarter: 2004Q1

REPORT INFORMATION
  Report Type: 
  Country: None (occurrence: None)
  Receive Date: 20040304
  Receipt Date: 20040302
  Transmission Date: 20041129
  Serious: Yes (Hospitalization)
  Sender: FDA-Public Use
  Company Number: US-GLAXOSMITHKLINE-A0500710A

PATIENT
  Age: 13 Year
  Sex: Female

DRUGS (3)
  1. ADVAIR DISKUS 100/50 [Suspect]
     Indication: ASTHMA
     Dosage: 1PUFF TWICE PER DAY
     Route: 055
     Dates: start: 20000101
  2. VENTOLIN [Concomitant]
  3. SOLU-MEDROL [Concomitant]

REACTIONS (5)
  - ARTHRALGIA [None]
  - ASTHMA [None]
  - MIGRAINE [None]
  - PNEUMONIA [None]
  - SINUSITIS [None]
